FAERS Safety Report 4481385-7 (Version None)
Quarter: 2004Q4

REPORT INFORMATION
  Report Type: 
  Country: None (occurrence: None)
  Receive Date: 20041021
  Receipt Date: 20041012
  Transmission Date: 20050328
  Serious: Yes (Hospitalization)
  Sender: FDA-Public Use
  Company Number: PHHO2004DE14382

PATIENT
  Age: 51 Year
  Sex: Male

DRUGS (3)
  1. CYCLOSPORINE [Suspect]
     Indication: HEART TRANSPLANT
     Dosage: 200 MG, BID
     Route: 048
  2. DECORTIN [Concomitant]
     Indication: HEART TRANSPLANT
     Dosage: NOT REPORTED
     Route: 048
  3. IMUREL [Concomitant]
     Indication: HEART TRANSPLANT
     Dosage: NOT REPORTED
     Route: 048

REACTIONS (1)
  - SYNCOPE [None]
